FAERS Safety Report 13273393 (Version 4)
Quarter: 2017Q2

REPORT INFORMATION
  Report Type: Report from Study
  Country: JP (occurrence: JP)
  Receive Date: 20170227
  Receipt Date: 20170501
  Transmission Date: 20170830
  Serious: Yes (Other)
  Sender: FDA-Public Use
  Company Number: PHJP2017JP006284

PATIENT
  Age: 7 Month
  Sex: Male

DRUGS (13)
  1. INFLUENZA VACCINE [Concomitant]
     Active Substance: INFLUENZA VIRUS VACCINE
     Indication: PROPHYLAXIS
     Dosage: 0.25 ML, UNK
     Route: 065
     Dates: start: 20161115, end: 20161115
  2. ACZ885 [Suspect]
     Active Substance: CANAKINUMAB
     Indication: CHRONIC INFANTILE NEUROLOGICAL CUTANEOUS AND ARTICULAR SYNDROME
     Dosage: 15 MG, UNK
     Route: 058
     Dates: start: 20160823, end: 20160823
  3. ACZ885 [Suspect]
     Active Substance: CANAKINUMAB
     Dosage: 16.5 MG, UNK
     Route: 058
     Dates: start: 20161213, end: 20161213
  4. INCREMIN [Concomitant]
     Active Substance: FERRIC PYROPHOSPHATE
     Indication: CHRONIC INFANTILE NEUROLOGICAL CUTANEOUS AND ARTICULAR SYNDROME
     Dosage: 6 ML, UNK
     Route: 048
     Dates: start: 20170110
  5. PHENOBAL [Concomitant]
     Active Substance: PHENOBARBITAL
     Indication: CHRONIC INFANTILE NEUROLOGICAL CUTANEOUS AND ARTICULAR SYNDROME
     Dosage: 40 MG, UNK
     Route: 048
     Dates: start: 20160424
  6. INFLUENZA VACCINE [Concomitant]
     Active Substance: INFLUENZA VIRUS VACCINE
     Dosage: 0.25 ML, UNK
     Route: 065
     Dates: start: 20170110, end: 20170110
  7. CLARITHROMYCIN. [Concomitant]
     Active Substance: CLARITHROMYCIN
     Indication: RHINORRHOEA
  8. ACZ885 [Suspect]
     Active Substance: CANAKINUMAB
     Dosage: 16.5 MG, UNK
     Route: 058
     Dates: start: 20161018, end: 20161018
  9. MUCODYNE [Concomitant]
     Active Substance: CARBOCYSTEINE
     Indication: PROPHYLAXIS
     Dosage: 240 MG, QD
     Route: 048
     Dates: start: 20170131, end: 20170206
  10. MUCODYNE [Concomitant]
     Active Substance: CARBOCYSTEINE
     Indication: RHINORRHOEA
  11. CLARITHROMYCIN. [Concomitant]
     Active Substance: CLARITHROMYCIN
     Indication: PROPHYLAXIS
     Dosage: 0.8 G, UNK
     Route: 048
     Dates: start: 20170131, end: 20170213
  12. ACZ885 [Suspect]
     Active Substance: CANAKINUMAB
     Dosage: 16.5 MG, UNK
     Route: 058
     Dates: start: 20170207
  13. SYNAGIS [Concomitant]
     Active Substance: PALIVIZUMAB
     Indication: PROPHYLAXIS
     Dosage: 120 MG, 4W
     Route: 065
     Dates: start: 20161213

REACTIONS (5)
  - Road traffic accident [Unknown]
  - Drug administered to patient of inappropriate age [Not Recovered/Not Resolved]
  - Papilloedema [Unknown]
  - Rhinorrhoea [Recovering/Resolving]
  - Viral upper respiratory tract infection [Recovered/Resolved]

NARRATIVE: CASE EVENT DATE: 20160823
